FAERS Safety Report 26020871 (Version 1)
Quarter: 2025Q4

REPORT INFORMATION
  Report Type: Spontaneous
  Country: VN (occurrence: VN)
  Receive Date: 20251110
  Receipt Date: 20251110
  Transmission Date: 20260117
  Serious: Yes (Hospitalization, Other)
  Sender: GUERBET
  Company Number: VN-GUERBET / HYPHENS-VN-20250031

PATIENT
  Age: 65 Year
  Sex: Female

DRUGS (4)
  1. LIPIODOL [Suspect]
     Active Substance: ETHIODIZED OIL
     Indication: Therapeutic procedure
     Dosage: 1.6 ML OF LIPIODOL IN MIXTURE WITH 1 ML OF 2-OCTYL CYANOACRYLATE
     Route: 042
  2. OCRYLATE [Suspect]
     Active Substance: OCRYLATE
     Indication: Therapeutic procedure
     Dosage: 1.6 ML OF LIPIODOL IN MIXTURE WITH 1 ML OF 2-OCTYL CYANOACRYLATE
     Route: 042
  3. OCTREOTIDE [Concomitant]
     Active Substance: OCTREOTIDE
     Indication: Supportive care
  4. CEFTRIAXONE [Concomitant]
     Active Substance: CEFTRIAXONE
     Indication: Prophylaxis

REACTIONS (2)
  - Pulmonary embolism [Recovered/Resolved]
  - Interstitial lung disease [Recovered/Resolved]
